FAERS Safety Report 18740115 (Version 1)
Quarter: 2021Q1

REPORT INFORMATION
  Report Type: Report from Study
  Country: SE (occurrence: CN)
  Receive Date: 20210114
  Receipt Date: 20210114
  Transmission Date: 20210419
  Serious: Yes (Death, Life-Threatening, Hospitalization)
  Sender: FDA-Public Use
  Company Number: CN-ELI_LILLY_AND_COMPANY-CN202101003345

PATIENT
  Age: 48 Year
  Sex: Female

DRUGS (18)
  1. OMEPRAZOLE SODIUM [Concomitant]
     Active Substance: OMEPRAZOLE SODIUM
     Indication: CHEMOTHERAPY SIDE EFFECT PROPHYLAXIS
     Dosage: 40 MG, DAILY
     Route: 042
     Dates: start: 20170720, end: 20170728
  2. VITAMIN B6 [Concomitant]
     Active Substance: PYRIDOXINE HYDROCHLORIDE
     Indication: CHEMOTHERAPY SIDE EFFECT PROPHYLAXIS
     Dosage: 2 G, DAILY
     Route: 042
     Dates: start: 20170720, end: 20170722
  3. PREGABALIN. [Concomitant]
     Active Substance: PREGABALIN
     Indication: CANCER PAIN
     Dosage: UNK
     Dates: start: 20170725, end: 20170725
  4. GEMCITABINE HYDROCHLORIDE. [Suspect]
     Active Substance: GEMCITABINE HYDROCHLORIDE
     Dosage: 1400 MG, CYCLICAL (Q3WK)
     Route: 042
     Dates: start: 20170724, end: 20170724
  5. GLYCYRRHIZIC ACID [Concomitant]
     Active Substance: GLYCYRRHIZIN
     Indication: PROPHYLAXIS
     Dosage: 30 ML
     Route: 042
     Dates: start: 20170720, end: 20170808
  6. DIPHENHYDRAMINE HYDROCHLORIDE. [Concomitant]
     Active Substance: DIPHENHYDRAMINE HYDROCHLORIDE
     Indication: PROPHYLAXIS
     Dosage: 1 ML, DAILY
     Route: 030
     Dates: start: 20170725, end: 20170725
  7. IBANDRONATE SODIUM. [Concomitant]
     Active Substance: IBANDRONATE SODIUM
     Indication: METASTASES TO BONE
  8. LOXOPROFEN SODIUM [Concomitant]
     Active Substance: LOXOPROFEN SODIUM
     Indication: PAIN IN EXTREMITY
     Dosage: 1 DOSAGE FORM, UNKNOWN
     Route: 048
     Dates: start: 20170706
  9. ALBUMIN HUMAN [Concomitant]
     Active Substance: ALBUMIN HUMAN
     Indication: PROPHYLAXIS
     Dosage: 10 G, DAILY
     Route: 042
     Dates: start: 20170725, end: 20170725
  10. RED BLOOD CELLS [Concomitant]
     Active Substance: HUMAN RED BLOOD CELL
     Indication: HAEMOGLOBIN DECREASED
     Dosage: UNK, DAILY
     Route: 042
     Dates: start: 20170725, end: 20170726
  11. GEMCITABINE HYDROCHLORIDE. [Suspect]
     Active Substance: GEMCITABINE HYDROCHLORIDE
     Indication: NON-SMALL CELL LUNG CANCER
     Dosage: 400 MG, CYCLICAL (Q3WK)
     Route: 042
     Dates: start: 20170720, end: 20170720
  12. PALONOSETRON HYDROCHLORIDE. [Concomitant]
     Active Substance: PALONOSETRON HYDROCHLORIDE
     Indication: CHEMOTHERAPY SIDE EFFECT PROPHYLAXIS
     Dosage: 250 MG, DAILY
     Route: 042
     Dates: start: 20170720, end: 20170722
  13. CEFOPERAZONE SODIUM AND SULBACTAM SODIUM [Concomitant]
     Active Substance: CEFOPERAZONE SODIUM\SULBACTAM SODIUM
     Indication: INFECTION PROPHYLAXIS
     Dosage: 3 G, BID
     Route: 042
     Dates: start: 20170724, end: 20170804
  14. DICLOFENAC SODIUM. [Concomitant]
     Active Substance: DICLOFENAC SODIUM
     Indication: PAIN IN EXTREMITY
     Dosage: 75 MG, BID
     Route: 048
     Dates: start: 20170724, end: 20170728
  15. PLASMA [Concomitant]
     Active Substance: HUMAN PLASMA
     Indication: PRODUCT USED FOR UNKNOWN INDICATION
     Route: 042
  16. CARBOPLATIN. [Concomitant]
     Active Substance: CARBOPLATIN
     Indication: NON-SMALL CELL LUNG CANCER
     Dosage: UNK, CYCLICAL
     Route: 042
     Dates: start: 20170720, end: 20170720
  17. CALCIUM GLUCONATE. [Concomitant]
     Active Substance: CALCIUM GLUCONATE
     Indication: PROPHYLAXIS
     Dosage: 2 G, DAILY
     Route: 042
     Dates: start: 20170727, end: 20170803
  18. IBANDRONATE SODIUM. [Concomitant]
     Active Substance: IBANDRONATE SODIUM
     Indication: MALIGNANT PLEURAL EFFUSION
     Dosage: 4 MG, SINGLE
     Route: 042
     Dates: start: 20170725, end: 20170725

REACTIONS (2)
  - Platelet count decreased [Recovered/Resolved]
  - Infusion related reaction [Recovered/Resolved]

NARRATIVE: CASE EVENT DATE: 20170720
